FAERS Safety Report 20636545 (Version 1)
Quarter: 2022Q1

REPORT INFORMATION
  Report Type: Spontaneous
  Country: FR (occurrence: FR)
  Receive Date: 20220325
  Receipt Date: 20220325
  Transmission Date: 20220423
  Serious: Yes (Other)
  Sender: FDA-Public Use
  Company Number: FR-NOVARTISPH-NVSC2022FR068151

PATIENT
  Age: 58 Year
  Sex: Female

DRUGS (1)
  1. ACLASTA [Suspect]
     Active Substance: ZOLEDRONIC ACID
     Indication: Osteoporosis
     Dosage: 1 DOSAGE FORM, 5 MG/100 ML, TWICE PER YEAR
     Route: 041
     Dates: start: 20220226

REACTIONS (2)
  - Uveitis [Unknown]
  - Off label use [Unknown]

NARRATIVE: CASE EVENT DATE: 20220226
